FAERS Safety Report 7740353 (Version 3)
Quarter: 2017Q3

REPORT INFORMATION
  Report Type: Report from Study
  Country: JP (occurrence: JP)
  Receive Date: 20101227
  Receipt Date: 20170914
  Transmission Date: 20171128
  Serious: Yes (Hospitalization, Other)
  Sender: FDA-Public Use
  Company Number: PHHY2010JP61642

PATIENT
  Age: 70 Year
  Sex: Female

DRUGS (11)
  1. HYPEN [Concomitant]
     Active Substance: ETODOLAC
     Indication: METASTATIC RENAL CELL CARCINOMA
     Dosage: 400 MG, UNK
     Route: 048
     Dates: start: 20100506
  2. NOVAMIN (PROCHLORPERAZINE) [Concomitant]
     Active Substance: PROCHLORPERAZINE
     Indication: METASTATIC RENAL CELL CARCINOMA
     Dosage: 15 MG, UNK
     Route: 048
     Dates: start: 20100506
  3. ARTIST [Concomitant]
     Active Substance: CARVEDILOL
     Indication: PRODUCT USED FOR UNKNOWN INDICATION
     Dosage: 2.5 MG, UNK
     Route: 048
     Dates: start: 20100506, end: 20100519
  4. MYONAL [Concomitant]
     Active Substance: EPERISONE HYDROCHLORIDE
     Indication: PRODUCT USED FOR UNKNOWN INDICATION
     Dosage: 150 UG, UNK
     Route: 048
     Dates: start: 20100506, end: 20100519
  5. NEXAVAR [Concomitant]
     Active Substance: SORAFENIB
     Indication: PRODUCT USED FOR UNKNOWN INDICATION
     Dosage: 400 MG, UNK
     Route: 048
     Dates: start: 20100107, end: 20100204
  6. AFINITOR [Suspect]
     Active Substance: EVEROLIMUS
     Indication: METASTATIC RENAL CELL CARCINOMA
     Dosage: 10 MG, QD
     Route: 048
     Dates: start: 20100506, end: 20100519
  7. MAGLAX [Concomitant]
     Active Substance: MAGNESIUM OXIDE
     Indication: METASTATIC RENAL CELL CARCINOMA
     Dosage: 750 MG, UNK
     Route: 048
     Dates: start: 20100506
  8. WARFARIN [Suspect]
     Active Substance: WARFARIN
     Indication: PROPHYLAXIS
     Dosage: 2.5 MG, UNK
     Route: 048
     Dates: start: 20100506, end: 20100519
  9. OXINORM [Concomitant]
     Active Substance: OXYCODONE HYDROCHLORIDE
     Indication: METASTATIC RENAL CELL CARCINOMA
     Route: 048
  10. OXYCONTIN [Concomitant]
     Active Substance: OXYCODONE HYDROCHLORIDE
     Indication: METASTATIC RENAL CELL CARCINOMA
     Dosage: 10 MG, UNK
     Route: 048
     Dates: start: 20100506
  11. FERROMIA [Concomitant]
     Active Substance: FERROUS CITRATE
     Indication: PRODUCT USED FOR UNKNOWN INDICATION
     Route: 048
     Dates: start: 20100506, end: 20100519

REACTIONS (10)
  - Haemoglobin decreased [Not Recovered/Not Resolved]
  - Infection [Unknown]
  - Decreased appetite [Recovering/Resolving]
  - Tumour associated fever [Unknown]
  - Pyrexia [Unknown]
  - Prothrombin time prolonged [Recovered/Resolved]
  - Hypertonic bladder [Unknown]
  - C-reactive protein increased [Unknown]
  - Activated partial thromboplastin time prolonged [Recovered/Resolved]
  - Blood urea increased [Not Recovered/Not Resolved]

NARRATIVE: CASE EVENT DATE: 20100506
